FAERS Safety Report 7079333-9 (Version None)
Quarter: 2010Q4

REPORT INFORMATION
  Report Type: 
  Country: None (occurrence: None)
  Receive Date: 20101102
  Receipt Date: 20100628
  Transmission Date: 20110411
  Serious: No
  Sender: FDA-Public Use
  Company Number: A0867403A

PATIENT
  Age: 70 Year
  Sex: Female

DRUGS (2)
  1. RYTHMOL SR [Suspect]
     Route: 048
     Dates: start: 20100626
  2. NO CONCURRENT MEDICATION [Concomitant]

REACTIONS (1)
  - RASH [None]
